FAERS Safety Report 26102083 (Version 1)
Quarter: 2025Q4

REPORT INFORMATION
  Report Type: Spontaneous
  Country: EU (occurrence: EU)
  Receive Date: 20251128
  Receipt Date: 20251128
  Transmission Date: 20260119
  Serious: Yes (Other)
  Sender: GLAXOSMITHKLINE
  Company Number: EU-GSKCCFEMEA-Case-02738890_AE-105380

PATIENT

DRUGS (1)
  1. MOMELOTINIB [Suspect]
     Active Substance: MOMELOTINIB
     Indication: Myelofibrosis
     Dosage: 200 MG

REACTIONS (1)
  - Polyneuropathy [Unknown]
